FAERS Safety Report 8129299-5 (Version None)
Quarter: 2011Q4

REPORT INFORMATION
  Report Type: 
  Country: None (occurrence: None)
  Receive Date: 20111227
  Receipt Date: 20111130
  Transmission Date: 20120403
  Serious: No
  Sender: FDA-Public Use
  Company Number: PHHY2011US55694

PATIENT
  Age: 51 Year
  Sex: Female
  Weight: 71.7 kg

DRUGS (20)
  1. SYNTHROID (LEVOTHYROXINE SODIUM) TABLET [Concomitant]
  2. LOTENSIN [Concomitant]
  3. ESTRADIOL (ESTRADIOL) SPRAY [Concomitant]
  4. ZOCOR [Concomitant]
  5. ULTRACET [Concomitant]
  6. METANX (FOLIC ACID, L-METHYLFOLATE, MECOBALAMIN, PYRIDOXINE) [Concomitant]
  7. ALPHA LIPOIC ACID (THIOCTIC ACID) [Concomitant]
  8. LYRICA [Concomitant]
  9. CYMBALTA [Concomitant]
  10. COREG (CARVEDILOL) CAPSULE [Concomitant]
  11. NEXIUM /01479302/(ESOMEPRAZOLE MAGNESIUM) CAPSULE [Concomitant]
  12. CALCIUM (CALCIUM) TABLET [Concomitant]
  13. SYNTHROID (LEVOTHYROXINE SODIUM) TABLET [Concomitant]
  14. COREG (CARVEDILOL) CAPSULE [Concomitant]
  15. GILENYA [Suspect]
     Indication: MULTIPLE SCLEROSIS
     Dosage: 0.5 MG, QD, ORAL
     Route: 048
     Dates: start: 20110609
  16. GLUCOPHAGE (METFORMIN) TABLET [Concomitant]
  17. LYRICA [Concomitant]
  18. CYMBALTA [Concomitant]
  19. ROBAXIN (METHOCARBAMOL) TABLET [Concomitant]
  20. BENAZEPLUS (BENAZEPRIL HYDROCHLORIDE, HYDROCHLOROTHIAZIDE) TABLET [Concomitant]

REACTIONS (11)
  - OEDEMA PERIPHERAL [None]
  - NAUSEA [None]
  - DYSGEUSIA [None]
  - BACK PAIN [None]
  - NASAL CONGESTION [None]
  - PAIN IN EXTREMITY [None]
  - TINEA INFECTION [None]
  - FALL [None]
  - HYPERCHLORHYDRIA [None]
  - HEADACHE [None]
  - DIZZINESS [None]
